FAERS Safety Report 11473400 (Version 1)
Quarter: 2015Q3

REPORT INFORMATION
  Report Type: Spontaneous
  Country: US (occurrence: US)
  Receive Date: 20150908
  Receipt Date: 20150908
  Transmission Date: 20151125
  Serious: No
  Sender: FDA-Public Use
  Company Number: US-AMEDRA PHARMACEUTICALS LLC-2015AMD00076

PATIENT
  Age: 36 Year
  Sex: Female
  Weight: 113.38 kg

DRUGS (5)
  1. ALBUTEROL (NEBULIZER) [Concomitant]
     Dosage: UNK, 2X/DAY
  2. EPINEPHRINE. [Suspect]
     Active Substance: EPINEPHRINE
     Indication: WHEEZING
  3. EPINEPHRINE. [Suspect]
     Active Substance: EPINEPHRINE
     Indication: ASTHMA
     Dosage: 1 DOSAGE UNITS, ONCE
     Route: 051
     Dates: start: 20150512, end: 20150512
  4. PREDNISONE. [Concomitant]
     Active Substance: PREDNISONE
     Dosage: 1 DOSAGE UNITS, ONCE
  5. VENTOLIN (INHALER) [Concomitant]
     Dosage: UNK, 2X/DAY

REACTIONS (4)
  - Injection site discomfort [Recovering/Resolving]
  - Back pain [Not Recovered/Not Resolved]
  - Musculoskeletal pain [Not Recovered/Not Resolved]
  - Oral pain [Not Recovered/Not Resolved]

NARRATIVE: CASE EVENT DATE: 20150512
